FAERS Safety Report 23892702 (Version 1)
Quarter: 2024Q2

REPORT INFORMATION
  Report Type: Spontaneous
  Country: US (occurrence: None)
  Receive Date: 20240524
  Receipt Date: 20240524
  Transmission Date: 20240716
  Serious: Yes (Hospitalization)
  Sender: FDA-Public Use
  Company Number: US-ROCHE-3473641

PATIENT
  Age: 61 Year
  Sex: Female
  Weight: 61.744 kg

DRUGS (8)
  1. GAVRETO [Suspect]
     Active Substance: PRALSETINIB
     Indication: Lung neoplasm malignant
     Dosage: 4 CAPSULES BY MOUTH ONCE DAILY ON A AN EMPTY STOMACH AT LEAST ONE HOUR BEFORE  A MEAL OR AT LEAST 2
     Route: 048
     Dates: start: 202303, end: 20230428
  2. XARELTO [Concomitant]
     Active Substance: RIVAROXABAN
     Indication: Thrombosis
     Route: 048
     Dates: start: 2023
  3. CALCIUM CARBONATE\CHOLECALCIFEROL [Concomitant]
     Active Substance: CALCIUM CARBONATE\CHOLECALCIFEROL
     Dosage: 600 MG CALCIUM D3 20 MCG
     Route: 048
     Dates: start: 202303
  4. ZOMETA [Concomitant]
     Active Substance: ZOLEDRONIC ACID
     Route: 042
     Dates: start: 202303
  5. BUPROPION [Concomitant]
     Active Substance: BUPROPION
     Route: 048
     Dates: start: 200303
  6. VALTREX [Concomitant]
     Active Substance: VALACYCLOVIR HYDROCHLORIDE
     Route: 048
  7. TOPIRAMATE [Concomitant]
     Active Substance: TOPIRAMATE
     Indication: Migraine
     Dosage: THREE TABLETS BY MOUTH ONCE A DAY
     Route: 048
     Dates: start: 20230807
  8. RETEVMO [Concomitant]
     Active Substance: SELPERCATINIB
     Indication: Lung neoplasm malignant
     Dates: start: 202305

REACTIONS (3)
  - Pyrexia [Recovered/Resolved]
  - Haemoptysis [Not Recovered/Not Resolved]
  - Epistaxis [Recovered/Resolved]

NARRATIVE: CASE EVENT DATE: 20230425
